FAERS Safety Report 9388777 (Version 4)
Quarter: 2013Q4

REPORT INFORMATION
  Report Type: Report from Study
  Country: GR (occurrence: GR)
  Receive Date: 20130708
  Receipt Date: 20131211
  Transmission Date: 20140711
  Serious: Yes (Hospitalization)
  Sender: FDA-Public Use
  Company Number: GR-GLAXOSMITHKLINE-B0906219A

PATIENT
  Age: 45 Year
  Sex: Male
  Weight: 60 kg

DRUGS (2)
  1. PAZOPANIB [Suspect]
     Indication: RENAL CELL CARCINOMA
     Dosage: 800MG PER DAY
     Route: 048
     Dates: start: 20130402
  2. EPOETIN [Suspect]
     Indication: ANAEMIA
     Dosage: 40KIU WEEKLY
     Route: 058
     Dates: start: 201304

REACTIONS (1)
  - Thrombosis [Not Recovered/Not Resolved]
